FAERS Safety Report 7449025-2 (Version None)
Quarter: 2011Q2

REPORT INFORMATION
  Report Type: 
  Country: None (occurrence: None)
  Receive Date: 20110429
  Receipt Date: 20110425
  Transmission Date: 20111010
  Serious: Yes (Hospitalization, Other)
  Sender: FDA-Public Use
  Company Number: US-RB-026454-11

PATIENT
  Sex: Female

DRUGS (1)
  1. SUBOXONE [Suspect]
     Indication: ACCIDENTAL EXPOSURE
     Dosage: ACCIDENTAL INGESTION OF AN UNKNOWN AMOUNT
     Route: 065
     Dates: start: 20110325, end: 20110325

REACTIONS (2)
  - LOSS OF CONSCIOUSNESS [None]
  - ACCIDENTAL EXPOSURE [None]
